FAERS Safety Report 24097473 (Version 1)
Quarter: 2024Q3

REPORT INFORMATION
  Report Type: Spontaneous
  Country: US (occurrence: None)
  Receive Date: 20240716
  Receipt Date: 20240716
  Transmission Date: 20241016
  Serious: Yes (Hospitalization)
  Sender: Public
  Company Number: None

PATIENT
  Sex: Male

DRUGS (1)
  1. RETACRIT [Suspect]
     Active Substance: EPOETIN ALFA-EPBX
     Indication: Anaemia of chronic disease
     Dosage: FREQUENCY : WEEKLY;?
     Route: 042
     Dates: end: 202204

REACTIONS (3)
  - Dialysis [None]
  - Haemoglobin decreased [None]
  - Nephropathy [None]
